FAERS Safety Report 6155358-2 (Version None)
Quarter: 2009Q2

REPORT INFORMATION
  Report Type: 
  Country: None (occurrence: None)
  Receive Date: 20090415
  Receipt Date: 20090406
  Transmission Date: 20091009
  Serious: Yes (Death, Life-Threatening)
  Sender: FDA-Public Use
  Company Number: JP-BAYER-200911043BYL

PATIENT
  Age: 56 Year
  Sex: Male
  Weight: 60 kg

DRUGS (27)
  1. FLUDARA [Suspect]
     Indication: MULTIPLE MYELOMA
     Dosage: AS USED: 41 MG  UNIT DOSE: 50 MG
     Route: 042
     Dates: start: 20080711, end: 20080715
  2. MELPHALAN [Concomitant]
     Indication: MULTIPLE MYELOMA
     Dosage: AS USED: 116 MG
     Route: 042
     Dates: start: 20080714, end: 20080715
  3. TACROLIMUS [Concomitant]
     Indication: PROPHYLAXIS AGAINST GRAFT VERSUS HOST DISEASE
     Dosage: AS USED: 1.2 MG
     Route: 065
     Dates: start: 20080716, end: 20080829
  4. METHOTREXATE [Concomitant]
     Indication: PROPHYLAXIS AGAINST GRAFT VERSUS HOST DISEASE
     Dosage: AS USED: 10 MG
     Route: 065
     Dates: start: 20080723, end: 20080723
  5. METHOTREXATE [Concomitant]
     Dosage: AS USED: 15 MG
     Route: 065
     Dates: start: 20080718, end: 20080718
  6. METHOTREXATE [Concomitant]
     Dosage: AS USED: 10 MG
     Route: 065
     Dates: start: 20080720, end: 20080720
  7. ZOMETA [Concomitant]
     Dosage: AS USED: 4 MG
     Route: 065
     Dates: start: 20080723, end: 20080723
  8. NEUTROGIN [Concomitant]
     Indication: INFECTION PROPHYLAXIS
     Dosage: AS USED: 300 ?G
     Route: 065
     Dates: start: 20080722, end: 20080829
  9. ORGARAN [Concomitant]
     Dosage: AS USED: 2 DF
     Route: 065
     Dates: start: 20080718, end: 20080829
  10. TAKEPRON [Concomitant]
     Dosage: AS USED: 60 MG
     Route: 042
     Dates: start: 20080727, end: 20080829
  11. PERDIPINE [Concomitant]
     Dosage: AS USED: 50 MG
     Route: 042
     Dates: start: 20080724, end: 20080824
  12. MORPHINE HYDROCHLORIDE [Concomitant]
     Dosage: AS USED: 20 MG
     Route: 065
     Dates: start: 20080723, end: 20080801
  13. DENOSINE [Concomitant]
     Indication: INFECTION PROPHYLAXIS
     Dosage: AS USED: 250 MG
     Route: 042
     Dates: start: 20080805, end: 20080809
  14. ELASPOL [Concomitant]
     Dosage: AS USED: 300 MG
     Route: 065
     Dates: start: 20080801
  15. CONTOMIN [Concomitant]
     Dosage: AS USED: 12.5 MG
     Route: 048
     Dates: start: 20080711, end: 20080724
  16. OXINORM [Concomitant]
     Dosage: AS USED: 5 MG
     Route: 048
     Dates: start: 20080711, end: 20080724
  17. MYSLEE [Concomitant]
     Dosage: AS USED: 5 MG
     Route: 048
     Dates: start: 20080711, end: 20080724
  18. PARIET [Concomitant]
     Dosage: AS USED: 10 MG
     Route: 048
     Dates: start: 20080711, end: 20080724
  19. DIFLUCAN [Concomitant]
     Indication: INFECTION PROPHYLAXIS
     Dosage: AS USED: 400 MG
     Route: 048
     Dates: start: 20080711, end: 20080724
  20. ZOVIRAX [Concomitant]
     Indication: INFECTION PROPHYLAXIS
     Dosage: AS USED: 1000 MG
     Route: 048
     Dates: start: 20080711, end: 20080829
  21. CIPROXAN [Concomitant]
     Indication: INFECTION PROPHYLAXIS
     Dosage: AS USED: 400 MG
     Route: 048
     Dates: start: 20080711, end: 20080724
  22. URSO 250 [Concomitant]
     Dosage: AS USED: 600 MG
     Route: 048
     Dates: start: 20080711, end: 20080829
  23. HYPEN [Concomitant]
     Dosage: AS USED: 400 MG
     Route: 048
     Dates: start: 20080711, end: 20080806
  24. NEUROTROPIN [Concomitant]
     Dosage: AS USED: 4 DF
     Route: 048
     Dates: start: 20080711, end: 20080724
  25. FRANDOL [Concomitant]
     Dosage: AS USED: 1 DF  UNIT DOSE: 1 DF
     Route: 062
     Dates: start: 20080717, end: 20080731
  26. BLOPRESS [Concomitant]
     Dosage: AS USED: 4 MG
     Route: 048
     Dates: start: 20080718, end: 20080724
  27. MONILAC [Concomitant]
     Dosage: AS USED: 30 ML
     Route: 048
     Dates: start: 20080816, end: 20080829

REACTIONS (5)
  - ALVEOLAR PROTEINOSIS [None]
  - FEBRILE NEUTROPENIA [None]
  - LIVER DISORDER [None]
  - PNEUMONIA [None]
  - VENOOCCLUSIVE LIVER DISEASE [None]
